FAERS Safety Report 6747969-8 (Version None)
Quarter: 2010Q2

REPORT INFORMATION
  Report Type: 
  Country: None (occurrence: None)
  Receive Date: 20100528
  Receipt Date: 20100521
  Transmission Date: 20101027
  Serious: Yes (Other)
  Sender: FDA-Public Use
  Company Number: US-MERCK-1005USA03978

PATIENT
  Age: 5 Year
  Sex: Male

DRUGS (3)
  1. SINGULAIR [Suspect]
     Indication: ASTHMA
     Route: 048
     Dates: start: 20030101, end: 20080107
  2. ALBUTEROL [Concomitant]
     Route: 065
  3. ADVAIR DISKUS 100/50 [Concomitant]
     Route: 065

REACTIONS (13)
  - ABNORMAL BEHAVIOUR [None]
  - ABNORMAL DREAMS [None]
  - AFFECT LABILITY [None]
  - EMOTIONAL DISORDER [None]
  - ENURESIS [None]
  - HALLUCINATION, VISUAL [None]
  - HUNGER [None]
  - IMPATIENCE [None]
  - IRRITABILITY [None]
  - MOOD ALTERED [None]
  - PHYSICAL ASSAULT [None]
  - SOMNOLENCE [None]
  - WEIGHT INCREASED [None]
